FAERS Safety Report 9026267 (Version 2)
Quarter: 2013Q1

REPORT INFORMATION
  Report Type: Spontaneous
  Country: NO (occurrence: None)
  Receive Date: 20121211
  Receipt Date: 20121221
  Transmission Date: 20140127
  Serious: Yes (Other)
  Sender: FDA-Public Use
  Company Number: 2012SP004325

PATIENT
  Sex: 0

DRUGS (4)
  1. MYCOPHENOLATE MOFETIL (MYCOPHENOLATE MOFETIL) [Suspect]
     Indication: PROPHYLAXIS AGAINST TRANSPLANT REJECTION
  2. PREDNISOLONE (PREDNISOLONE) [Suspect]
     Indication: PROPHYLAXIS AGAINST TRANSPLANT REJECTION
  3. FLUDARA (FLUDARABINE PHOSPHATE) [Suspect]
     Indication: STEM CELL TRANSPLANT
  4. TACROLIMUS [Concomitant]

REACTIONS (3)
  - Obliterative bronchiolitis [None]
  - Graft versus host disease [None]
  - Respiratory failure [None]
